FAERS Safety Report 9917454 (Version 1)
Quarter: 2014Q1

REPORT INFORMATION
  Report Type: Spontaneous
  Country: US (occurrence: US)
  Receive Date: 20140221
  Receipt Date: 20140221
  Transmission Date: 20141002
  Serious: No
  Sender: FDA-Public Use
  Company Number: US-PFIZER INC-2014048749

PATIENT
  Age: 59 Year
  Sex: Female
  Weight: 97 kg

DRUGS (1)
  1. CELEBREX [Suspect]
     Indication: JOINT SWELLING
     Dosage: UNK

REACTIONS (4)
  - Gastric disorder [Unknown]
  - Abdominal pain upper [Unknown]
  - Drug intolerance [Unknown]
  - Ulcer [Unknown]
